FAERS Safety Report 6743087-3 (Version None)
Quarter: 2010Q2

REPORT INFORMATION
  Report Type: 
  Country: None (occurrence: None)
  Receive Date: 20100527
  Receipt Date: 20100518
  Transmission Date: 20101027
  Serious: Yes (Hospitalization, Congenital Anomaly, Other)
  Sender: FDA-Public Use
  Company Number: US-JNJFOC-20060502307

PATIENT
  Sex: Male
  Weight: 2.36 kg

DRUGS (2)
  1. TOPAMAX [Suspect]
     Indication: EPILEPSY
     Route: 015
  2. CARBAMAZEPINE [Concomitant]
     Indication: EPILEPSY
     Route: 015

REACTIONS (6)
  - ATRIAL SEPTAL DEFECT [None]
  - COGNITIVE DISORDER [None]
  - CONGENITAL MUSCULOSKELETAL ANOMALY [None]
  - PATENT DUCTUS ARTERIOSUS [None]
  - RENAL FUSION ANOMALY [None]
  - VENTRICULAR SEPTAL DEFECT [None]
